FAERS Safety Report 5724977-7 (Version None)
Quarter: 2008Q2

REPORT INFORMATION
  Report Type: 
  Country: None (occurrence: None)
  Receive Date: 20080501
  Receipt Date: 20080425
  Transmission Date: 20081010
  Serious: No
  Sender: FDA-Public Use
  Company Number: DE-AVENTIS-200810696DE

PATIENT
  Age: 42 Year
  Sex: Female

DRUGS (1)
  1. ARAVA [Suspect]
     Route: 048
     Dates: start: 20070915, end: 20080226

REACTIONS (1)
  - DRUG EXPOSURE DURING PREGNANCY [None]
